FAERS Safety Report 6022808-1 (Version None)
Quarter: 2008Q4

REPORT INFORMATION
  Report Type: 
  Country: None (occurrence: None)
  Receive Date: 20081230
  Receipt Date: 20081217
  Transmission Date: 20090506
  Serious: Yes (Other)
  Sender: FDA-Public Use
  Company Number: GB-ELI_LILLY_AND_COMPANY-GB200812004403

PATIENT
  Age: 31 Year
  Sex: Female

DRUGS (3)
  1. OLANZAPINE [Suspect]
     Indication: SCHIZOPHRENIA
     Route: 048
     Dates: start: 20081006, end: 20081021
  2. ARIPIPRAZOLE [Concomitant]
     Indication: SCHIZOPHRENIA
     Dosage: 30 MG, UNK
     Route: 048
     Dates: start: 20080101
  3. FLUPENTIXOL [Concomitant]
     Indication: SCHIZOPHRENIA
     Dosage: 40 MG, UNK
     Route: 030
     Dates: start: 20070401

REACTIONS (4)
  - INFECTION [None]
  - NEUTROPHIL COUNT DECREASED [None]
  - URINARY TRACT INFECTION [None]
  - WHITE BLOOD CELL COUNT DECREASED [None]
